FAERS Safety Report 19230716 (Version 1)
Quarter: 2021Q2

REPORT INFORMATION
  Report Type: Spontaneous
  Country: US (occurrence: US)
  Receive Date: 20210507
  Receipt Date: 20210507
  Transmission Date: 20210717
  Serious: Yes (Other)
  Sender: FDA-Public Use
  Company Number: None

PATIENT
  Age: 71 Year
  Sex: Female
  Weight: 72.57 kg

DRUGS (5)
  1. PROLIA [Suspect]
     Active Substance: DENOSUMAB
  2. ASPIRIN. [Concomitant]
     Active Substance: ASPIRIN
  3. ALLERGA D [Concomitant]
  4. ALEVE [Concomitant]
     Active Substance: NAPROXEN SODIUM
  5. GENERAL VITAMINS [Concomitant]

REACTIONS (7)
  - Osteoporosis [None]
  - Gait disturbance [None]
  - Arthralgia [None]
  - Drug ineffective [None]
  - Disease progression [None]
  - Pain in extremity [None]
  - Insomnia [None]

NARRATIVE: CASE EVENT DATE: 20181130
